FAERS Safety Report 24682387 (Version 2)
Quarter: 2024Q4

REPORT INFORMATION
  Report Type: Spontaneous
  Country: NL (occurrence: NL)
  Receive Date: 20241130
  Receipt Date: 20241219
  Transmission Date: 20250115
  Serious: Yes (Death, Hospitalization, Other)
  Sender: MSN LABORATORIES PRIVATE LIMITED
  Company Number: NL-MSNLABS-2024MSNLIT02593

PATIENT

DRUGS (3)
  1. CAPECITABINE [Suspect]
     Active Substance: CAPECITABINE
     Indication: Hormone receptor positive HER2 negative breast cancer
     Dosage: 1000 MG/M2 TWICE DAILY FOR 2 WEEKS
     Route: 065
  2. CAPECITABINE [Suspect]
     Active Substance: CAPECITABINE
     Indication: Hormone receptor positive HER2 negative breast cancer
  3. ACETAZOLAMIDE [Concomitant]
     Active Substance: ACETAZOLAMIDE
     Indication: Intracranial pressure increased
     Dosage: 125 MG TWICE DAILY
     Route: 065

REACTIONS (6)
  - Thrombocytopenia [Fatal]
  - Hyponatraemia [Fatal]
  - Toxicity to various agents [Fatal]
  - Neutropenia [Fatal]
  - Stomatitis [Fatal]
  - Diarrhoea [Fatal]
